FAERS Safety Report 13604014 (Version 1)
Quarter: 2017Q2

REPORT INFORMATION
  Report Type: Spontaneous
  Country: US (occurrence: US)
  Receive Date: 20170601
  Receipt Date: 20170601
  Transmission Date: 20170830
  Serious: Yes (Disabling)
  Sender: FDA-Public Use
  Company Number: None

PATIENT
  Age: 31 Year
  Sex: Female
  Weight: 67.5 kg

DRUGS (17)
  1. ADDERALL [Concomitant]
     Active Substance: AMPHETAMINE ASPARTATE\AMPHETAMINE SULFATE\DEXTROAMPHETAMINE SACCHARATE\DEXTROAMPHETAMINE SULFATE
  2. MAGESIUM [Concomitant]
  3. VITAMIN B COMPLEX [Concomitant]
     Active Substance: CYANOCOBALAMIN\DEXPANTHENOL\NIACINAMIDE\PYRIDOXINE HYDROCHLORIDE\RIBOFLAVIN 5^-PHOSPHATE SODIUM\THIAMINE HYDROCHLORIDE\VITAMIN B COMPLEX
  4. VITAMIN B12 [Concomitant]
     Active Substance: CYANOCOBALAMIN
  5. PERCOCET [Concomitant]
     Active Substance: ACETAMINOPHEN\OXYCODONE HYDROCHLORIDE
  6. GABAPENTIN. [Concomitant]
     Active Substance: GABAPENTIN
  7. VITAMIN D3 [Concomitant]
     Active Substance: CHOLECALCIFEROL
  8. MSM [Concomitant]
     Active Substance: DIMETHYL SULFONE
  9. TURMERIC [Concomitant]
     Active Substance: HERBALS\TURMERIC
  10. SOMA [Concomitant]
     Active Substance: CARISOPRODOL
  11. VITAMIN C [Concomitant]
     Active Substance: ASCORBIC ACID
  12. COLLAGEN [Concomitant]
     Active Substance: COLLAGEN
  13. LEVOFLOXACIN 500MG [Suspect]
     Active Substance: LEVOFLOXACIN
     Indication: SINUSITIS
     Dosage: ?          QUANTITY:14 TABLET(S);?
     Route: 048
     Dates: start: 20160426, end: 20160428
  14. LODINE [Concomitant]
     Active Substance: ETODOLAC
  15. K2 [Concomitant]
     Active Substance: JWH-018
  16. IRON [Concomitant]
     Active Substance: IRON
  17. OMEGA OILS [Concomitant]

REACTIONS (8)
  - Arthralgia [None]
  - Asthenia [None]
  - Neuropathy peripheral [None]
  - Vertigo [None]
  - Pain in extremity [None]
  - Gait disturbance [None]
  - Muscle spasms [None]
  - Intervertebral disc protrusion [None]

NARRATIVE: CASE EVENT DATE: 20160426
